FAERS Safety Report 16481500 (Version 1)
Quarter: 2019Q2

REPORT INFORMATION
  Report Type: Spontaneous
  Country: US (occurrence: US)
  Receive Date: 20190627
  Receipt Date: 20190627
  Transmission Date: 20190711
  Serious: No
  Sender: FDA-Public Use
  Company Number: US-ELI_LILLY_AND_COMPANY-US201906009527

PATIENT
  Sex: Female

DRUGS (2)
  1. BASAGLAR [Suspect]
     Active Substance: INSULIN GLARGINE
     Indication: PRODUCT USED FOR UNKNOWN INDICATION
     Dosage: UNK, UNKNOWN
     Route: 065
  2. BASAGLAR [Suspect]
     Active Substance: INSULIN GLARGINE
     Dosage: UNK, UNKNOWN
     Route: 065

REACTIONS (9)
  - Myopia [Unknown]
  - Thyroid disorder [Not Recovered/Not Resolved]
  - Skin warm [Unknown]
  - Arthralgia [Unknown]
  - Hypophagia [Unknown]
  - Feeling abnormal [Not Recovered/Not Resolved]
  - Flushing [Unknown]
  - Drug ineffective [Unknown]
  - Blood glucose abnormal [Unknown]
